FAERS Safety Report 9024447 (Version 1)
Quarter: 2013Q1

REPORT INFORMATION
  Report Type: Spontaneous
  Country: US (occurrence: US)
  Receive Date: 20130121
  Receipt Date: 20130121
  Transmission Date: 20140127
  Serious: Yes (Hospitalization)
  Sender: FDA-Public Use
  Company Number: GXBR2013US000475

PATIENT
  Age: 39 None
  Sex: Male
  Weight: 92.97 kg

DRUGS (2)
  1. OMNITROPE [Suspect]
     Indication: BONE DISORDER
     Dosage: UNK U, QD
     Dates: start: 20121229
  2. VITAMIIN C [Concomitant]
     Dosage: UNK DF, UNK

REACTIONS (6)
  - Myocardial infarction [Not Recovered/Not Resolved]
  - Pain in extremity [Unknown]
  - Angina pectoris [Unknown]
  - Palpitations [Unknown]
  - Insomnia [Unknown]
  - Athletic heart syndrome [Unknown]
